FAERS Safety Report 10948356 (Version 2)
Quarter: 2015Q3

REPORT INFORMATION
  Report Type: Spontaneous
  Country: IT (occurrence: None)
  Receive Date: 20150320
  Receipt Date: 20150810
  Transmission Date: 20151125
  Serious: Yes (Hospitalization)
  Sender: FDA-Public Use
  Company Number: IT-ALSI-201500053

PATIENT
  Sex: Female

DRUGS (1)
  1. OSSIGENO AIR LIQUIDE SANITA GAS MEDICINALE CRIOGENICO OXYGEN [Suspect]
     Active Substance: OXYGEN
     Indication: RESPIRATORY FAILURE
     Dosage: RESPIRATORY
     Route: 055
     Dates: start: 20111110, end: 20150310

REACTIONS (3)
  - Thermal burn [None]
  - Wrong technique in product usage process [None]
  - Intentional product misuse [None]

NARRATIVE: CASE EVENT DATE: 20150310
